FAERS Safety Report 7118433-1 (Version None)
Quarter: 2010Q4

REPORT INFORMATION
  Report Type: 
  Country: None (occurrence: None)
  Receive Date: 20101020
  Receipt Date: 20100816
  Transmission Date: 20110411
  Serious: Yes (Other)
  Sender: FDA-Public Use
  Company Number: US-WYE-H16955810

PATIENT
  Age: 60 Year
  Sex: Female
  Weight: 59.02 kg

DRUGS (1)
  1. ADVIL PM [Suspect]
     Indication: INSOMNIA
     Dosage: 2 LIQUI-GELS 1 TIME, ORAL
     Route: 048
     Dates: start: 20100815, end: 20100815

REACTIONS (1)
  - FEELING JITTERY [None]
